FAERS Safety Report 6089251-0 (Version None)
Quarter: 2009Q1

REPORT INFORMATION
  Report Type: 
  Country: None (occurrence: None)
  Receive Date: 20090224
  Receipt Date: 20090219
  Transmission Date: 20090719
  Serious: Yes (Other)
  Sender: FDA-Public Use
  Company Number: US-PFIZER INC-2009173567

PATIENT
  Sex: Male
  Weight: 92.971 kg

DRUGS (5)
  1. LIPITOR [Suspect]
     Indication: HYPERTENSION
     Dates: start: 20090129, end: 20090201
  2. DILANTIN [Suspect]
     Indication: CONVULSION
     Dosage: 100 MG, 3X/DAY
     Dates: start: 20080101
  3. XANAX [Suspect]
     Indication: PANIC ATTACK
     Dosage: UNK
     Dates: start: 20090201
  4. PERCOCET [Concomitant]
     Dosage: UNK
  5. TRAMADOL HYDROCHLORIDE [Concomitant]
     Dosage: UNK

REACTIONS (5)
  - ANTICONVULSANT DRUG LEVEL BELOW THERAPEUTIC [None]
  - CONVULSION [None]
  - HYPERTENSION [None]
  - MYALGIA [None]
  - PALPITATIONS [None]
